FAERS Safety Report 13595713 (Version 1)
Quarter: 2017Q2

REPORT INFORMATION
  Report Type: Spontaneous
  Country: US (occurrence: US)
  Receive Date: 20170531
  Receipt Date: 20170531
  Transmission Date: 20170830
  Serious: No
  Sender: FDA-Public Use
  Company Number: US-JNJFOC-20170425838

PATIENT
  Sex: Male

DRUGS (1)
  1. TYLENOL COLD SORE THROAT EXTRA STRENGTH [Suspect]
     Active Substance: ACETAMINOPHEN
     Indication: INFLUENZA
     Route: 048
     Dates: start: 20170420, end: 20170422

REACTIONS (4)
  - Dyspnoea [Unknown]
  - Product use in unapproved indication [Unknown]
  - Rash erythematous [Not Recovered/Not Resolved]
  - No reaction on previous exposure to drug [None]

NARRATIVE: CASE EVENT DATE: 20170420
